FAERS Safety Report 10239647 (Version 2)
Quarter: 2014Q2

REPORT INFORMATION
  Report Type: Spontaneous
  Country: GB (occurrence: None)
  Receive Date: 20140612
  Receipt Date: 20140616
  Transmission Date: 20141212
  Serious: Yes (Hospitalization)
  Sender: FDA-Public Use
  Company Number: AUR-APL-2014-06232

PATIENT
  Age: 69 Year
  Sex: Female

DRUGS (3)
  1. METFORMIN [Suspect]
     Indication: PRODUCT USED FOR UNKNOWN INDICATION
  2. CHLORAMPHENICOL [Suspect]
     Indication: PRODUCT USED FOR UNKNOWN INDICATION
  3. RANIBIZUMAB [Suspect]
     Indication: MACULAR DEGENERATION
     Route: 031
     Dates: start: 20130919, end: 20130919

REACTIONS (11)
  - Transient ischaemic attack [None]
  - Gastroenteritis [None]
  - Malaise [None]
  - Fall [None]
  - Pyrexia [None]
  - Decreased appetite [None]
  - Diarrhoea [None]
  - Escherichia test positive [None]
  - Clostridium test positive [None]
  - Haemoglobin decreased [None]
  - Platelet count decreased [None]
